FAERS Safety Report 9372516 (Version 1)
Quarter: 2013Q2

REPORT INFORMATION
  Report Type: Spontaneous
  Country: US (occurrence: US)
  Receive Date: 20130627
  Receipt Date: 20130627
  Transmission Date: 20140414
  Serious: No
  Sender: FDA-Public Use
  Company Number: US-BAYER-2013-076761

PATIENT
  Age: 61 Year
  Sex: Male

DRUGS (6)
  1. BETASERON [Suspect]
     Dosage: 0.25 MG, QOD
     Route: 058
  2. TRAMADOL HYDROCHLORIDE [Concomitant]
     Dosage: 50 MG, UNK
  3. TIZANIDINE [Concomitant]
     Dosage: 4 MG, UNK
  4. TRILIPIX [Concomitant]
     Dosage: 135 MG, UNK
  5. VITAMIN D [Concomitant]
     Dosage: 50000 U, UNK
  6. LYRICA [Concomitant]
     Dosage: 150 MG, UNK

REACTIONS (2)
  - Depressive symptom [None]
  - Vision blurred [Unknown]
